FAERS Safety Report 23291252 (Version 2)
Quarter: 2023Q4

REPORT INFORMATION
  Report Type: Spontaneous
  Country: CA (occurrence: CA)
  Receive Date: 20231213
  Receipt Date: 20231215
  Transmission Date: 20240109
  Serious: Yes (Other)
  Sender: FDA-Public Use
  Company Number: CA-BAYER-2023A174907

PATIENT

DRUGS (1)
  1. EYLEA [Suspect]
     Active Substance: AFLIBERCEPT
     Indication: Polypoidal choroidal vasculopathy
     Dosage: UNK, 40 MG/ML

REACTIONS (3)
  - Polypoidal choroidal vasculopathy [Unknown]
  - Retinal haemorrhage [Recovering/Resolving]
  - Drug ineffective [Unknown]
